FAERS Safety Report 4595724-X (Version None)
Quarter: 2005Q1

REPORT INFORMATION
  Report Type: 
  Country: None (occurrence: None)
  Receive Date: 20050224
  Receipt Date: 20050207
  Transmission Date: 20050727
  Serious: Yes (Other)
  Sender: FDA-Public Use
  Company Number: JP_050205832

PATIENT
  Age: 76 Year
  Sex: Male

DRUGS (4)
  1. PERMAX [Suspect]
     Indication: PARKINSON'S DISEASE
     Dosage: 750 UG DAY
     Dates: start: 20030304, end: 20030530
  2. BENSERAZIDE HYDROCHLORIDE W/LEVODOPA [Concomitant]
  3. DOPS (DROXIDOPA) [Concomitant]
  4. SEROQUEL [Concomitant]

REACTIONS (3)
  - HALLUCINATION [None]
  - PERSECUTORY DELUSION [None]
  - SALIVARY HYPERSECRETION [None]
